FAERS Safety Report 19855228 (Version 1)
Quarter: 2021Q3

REPORT INFORMATION
  Report Type: Spontaneous
  Country: US (occurrence: US)
  Receive Date: 20210919
  Receipt Date: 20210919
  Transmission Date: 20211014
  Serious: Yes (Disabling)
  Sender: FDA-Public Use
  Company Number: None

PATIENT
  Age: 7 Year
  Sex: Female
  Weight: 22.5 kg

DRUGS (1)
  1. DIVALPROEX DR 125 MG CAP SPRNK [Suspect]
     Active Substance: DIVALPROEX SODIUM
     Indication: EPILEPSY WITH MYOCLONIC-ATONIC SEIZURES
     Dosage: ?          QUANTITY:2 CAPSULE(S);?
     Route: 048
     Dates: start: 20210912, end: 20210914

REACTIONS (4)
  - Seizure [None]
  - Product substitution issue [None]
  - Generalised tonic-clonic seizure [None]
  - Myoclonic epilepsy [None]

NARRATIVE: CASE EVENT DATE: 20210913
